FAERS Safety Report 12114983 (Version 1)
Quarter: 2016Q1

REPORT INFORMATION
  Report Type: Spontaneous
  Country: US (occurrence: US)
  Receive Date: 20160225
  Receipt Date: 20160225
  Transmission Date: 20160526
  Serious: No
  Sender: FDA-Public Use
  Company Number: US-MYLANLABS-2015M1031322

PATIENT
  Sex: Female

DRUGS (2)
  1. ALPRAZOLAM ER [Suspect]
     Active Substance: ALPRAZOLAM
     Indication: ANXIETY
     Dosage: 1 MG, HS
     Route: 048
     Dates: start: 20150723
  2. ALPRAZOLAM ER [Suspect]
     Active Substance: ALPRAZOLAM
     Indication: OFF LABEL USE

REACTIONS (3)
  - Sneezing [Not Recovered/Not Resolved]
  - Reaction to drug excipients [Not Recovered/Not Resolved]
  - Nasal congestion [Not Recovered/Not Resolved]

NARRATIVE: CASE EVENT DATE: 201507
